FAERS Safety Report 11337642 (Version 1)
Quarter: 2015Q3

REPORT INFORMATION
  Report Type: Spontaneous
  Country: US (occurrence: US)
  Receive Date: 20150803
  Receipt Date: 20150803
  Transmission Date: 20151125
  Serious: Yes (Other)
  Sender: FDA-Public Use
  Company Number: US-ELI_LILLY_AND_COMPANY-US200910003567

PATIENT
  Age: 85 Year
  Sex: Female

DRUGS (4)
  1. ZYPREXA [Suspect]
     Active Substance: OLANZAPINE
  2. ZOCOR [Concomitant]
     Active Substance: SIMVASTATIN
  3. NAMENDA [Concomitant]
     Active Substance: MEMANTINE HYDROCHLORIDE
  4. ARICEPT [Concomitant]
     Active Substance: DONEPEZIL HYDROCHLORIDE

REACTIONS (1)
  - Hepatic enzyme increased [Unknown]
